FAERS Safety Report 11785454 (Version 1)
Quarter: 2015Q4

REPORT INFORMATION
  Report Type: Report from Study
  Country: GB (occurrence: GB)
  Receive Date: 20151130
  Receipt Date: 20151130
  Transmission Date: 20160305
  Serious: Yes (Hospitalization)
  Sender: FDA-Public Use
  Company Number: GB-BIOGENIDEC-2015BI120420

PATIENT
  Sex: Male

DRUGS (4)
  1. PLEGRIDY [Suspect]
     Active Substance: PEGINTERFERON BETA-1A
     Indication: RELAPSING-REMITTING MULTIPLE SCLEROSIS
     Route: 058
     Dates: start: 20150731
  2. ISTOLDE (NOS) [Concomitant]
  3. FAMPYRA [Concomitant]
     Active Substance: DALFAMPRIDINE
  4. DETRUSITOL SR [Concomitant]
     Active Substance: TOLTERODINE TARTRATE

REACTIONS (3)
  - Sensory disturbance [Unknown]
  - Injection site erythema [Unknown]
  - Urosepsis [Recovered/Resolved]
